FAERS Safety Report 6431675-3 (Version None)
Quarter: 2009Q4

REPORT INFORMATION
  Report Type: 
  Country: None (occurrence: None)
  Receive Date: 20091103
  Receipt Date: 20091026
  Transmission Date: 20100525
  Serious: Yes (Hospitalization)
  Sender: FDA-Public Use
  Company Number: 386762

PATIENT
  Age: 45 Year
  Sex: Male

DRUGS (9)
  1. PHENYTOIN [Suspect]
  2. AVASTIN [Suspect]
     Indication: GLIOBLASTOMA MULTIFORME
     Dosage: 1287.5 MG,
     Dates: start: 20090721
  3. CARBOPLATIN [Concomitant]
  4. DEXAMETHASONE [Concomitant]
  5. METOCLOPRAMIDE [Concomitant]
  6. NEULASTA [Concomitant]
  7. ONDANSETRON [Concomitant]
  8. VALPROATE SODIUM [Concomitant]
  9. WARFARIN SODIUM [Concomitant]

REACTIONS (6)
  - CONFUSIONAL STATE [None]
  - CYTOKINE STORM [None]
  - DEEP VEIN THROMBOSIS [None]
  - DELIRIUM [None]
  - IMPETIGO [None]
  - PETECHIAE [None]
